FAERS Safety Report 19488796 (Version 6)
Quarter: 2022Q4

REPORT INFORMATION
  Report Type: Report from Study
  Country: JP (occurrence: JP)
  Receive Date: 20210702
  Receipt Date: 20221028
  Transmission Date: 20230113
  Serious: Yes (Hospitalization)
  Sender: FDA-Public Use
  Company Number: JP-PFIZER INC-2021816182

PATIENT
  Age: 1 Year
  Sex: Female
  Weight: 10.65 kg

DRUGS (7)
  1. SIROLIMUS [Suspect]
     Active Substance: SIROLIMUS
     Indication: Vascular malformation
     Dosage: 0.61 MG, 1X/DAY
     Route: 048
     Dates: start: 20200819, end: 20200915
  2. SIROLIMUS [Suspect]
     Active Substance: SIROLIMUS
     Indication: Vascular neoplasm
     Dosage: 0.79 MG, 1X/DAY
     Route: 048
     Dates: start: 20200916, end: 20201208
  3. SIROLIMUS [Suspect]
     Active Substance: SIROLIMUS
     Indication: Haemangioma
     Dosage: 1.03 MG, 1X/DAY
     Route: 048
     Dates: start: 20201209
  4. SULFAMETHOXAZOLE\TRIMETHOPRIM [Concomitant]
     Active Substance: SULFAMETHOXAZOLE\TRIMETHOPRIM
     Indication: Bacterial infection
     Dosage: 0.3 GM,12 HR
     Route: 048
     Dates: start: 20200819
  5. SULFAMETHOXAZOLE\TRIMETHOPRIM [Concomitant]
     Active Substance: SULFAMETHOXAZOLE\TRIMETHOPRIM
     Indication: Prophylaxis
     Dosage: 0.3 GM,12 HR
     Route: 048
     Dates: start: 20210616
  6. CEFCAPENE PIVOXIL HYDROCHLORIDE HYDRATE [Concomitant]
     Active Substance: CEFCAPENE PIVOXIL HYDROCHLORIDE HYDRATE
     Indication: Pyrexia
     Dosage: 0.333 GM,8 HR
     Route: 048
     Dates: start: 20210209
  7. CEFCAPENE PIVOXIL HYDROCHLORIDE HYDRATE [Concomitant]
     Active Substance: CEFCAPENE PIVOXIL HYDROCHLORIDE HYDRATE
     Dosage: 0.333 GM,8 HR
     Route: 048
     Dates: start: 20210614

REACTIONS (1)
  - Respiratory syncytial virus infection [Recovered/Resolved]

NARRATIVE: CASE EVENT DATE: 20210604
